FAERS Safety Report 7371731-9 (Version None)
Quarter: 2011Q1

REPORT INFORMATION
  Report Type: 
  Country: None (occurrence: None)
  Receive Date: 20110324
  Receipt Date: 20110317
  Transmission Date: 20110831
  Serious: Yes (Life-Threatening, Hospitalization)
  Sender: FDA-Public Use
  Company Number: DK-ROCHE-735231

PATIENT
  Sex: Male

DRUGS (5)
  1. AMLODIPINE [Concomitant]
     Route: 065
  2. PREDNISOLONE [Concomitant]
     Indication: PSORIATIC ARTHROPATHY
     Dates: start: 20031014, end: 20100826
  3. ROACTEMRA [Suspect]
     Route: 042
     Dates: start: 20090424
  4. ROACTEMRA [Suspect]
     Dosage: LAST DOSE PRIOR TO SAE: 23 SEPTEMBER 2010
     Route: 042
     Dates: start: 20091005
  5. ELTROXIN [Concomitant]
     Dosage: REPORTED AS ELTROXIN (LEVOTHYROXINE SODIUM)
     Route: 048

REACTIONS (4)
  - SEPTIC SHOCK [None]
  - WHITE BLOOD CELL COUNT DECREASED [None]
  - C-REACTIVE PROTEIN INCREASED [None]
  - SEPSIS [None]
